FAERS Safety Report 6255707-0 (Version None)
Quarter: 2009Q3

REPORT INFORMATION
  Report Type: 
  Country: None (occurrence: None)
  Receive Date: 20090701
  Receipt Date: 20090622
  Transmission Date: 20100115
  Serious: Yes (Death, Hospitalization, Other)
  Sender: FDA-Public Use
  Company Number: CERZ-1000661

PATIENT
  Age: 44 Year
  Sex: Male
  Weight: 50 kg

DRUGS (2)
  1. CEREZYME [Suspect]
     Indication: GAUCHER'S DISEASE
     Dosage: 2000 U, Q2W, INTRAVENOUS
     Route: 042
     Dates: start: 20030101, end: 20090424
  2. DOLANTIN (PETHIDINE HYDROCHLORIDE) [Concomitant]

REACTIONS (10)
  - BLOOD CREATINE PHOSPHOKINASE INCREASED [None]
  - DISEASE PROGRESSION [None]
  - FORMICATION [None]
  - HALLUCINATION [None]
  - HEPATIC FAILURE [None]
  - HIP FRACTURE [None]
  - PAIN [None]
  - RENAL FAILURE [None]
  - RESPIRATORY ARREST [None]
  - SENSORY DISTURBANCE [None]
